FAERS Safety Report 9524360 (Version 1)
Quarter: 2013Q3

REPORT INFORMATION
  Report Type: Spontaneous
  Country: US (occurrence: None)
  Receive Date: 20130912
  Receipt Date: 20130912
  Transmission Date: 20140515
  Serious: Yes (Disabling)
  Sender: FDA-Public Use
  Company Number: None

PATIENT
  Age: 35 None
  Sex: Female

DRUGS (5)
  1. ESTRADERM [Suspect]
     Indication: HYSTERECTOMY
     Dosage: .01 MG 1 PATCH TWICE A WEEK APPLIED TO MY BOTTOM
     Dates: start: 19860930, end: 20110820
  2. ESTRADERM [Suspect]
     Indication: OSTEOPOROSIS PROPHYLAXIS
     Dosage: .01 MG 1 PATCH TWICE A WEEK APPLIED TO MY BOTTOM
     Dates: start: 19860930, end: 20110820
  3. CALCIUM + VITAMIN D [Concomitant]
  4. OMEGA 3 [Concomitant]
  5. CRANBERRY CAPSULES [Concomitant]

REACTIONS (1)
  - Irritable bowel syndrome [None]
